FAERS Safety Report 8241221 (Version 6)
Quarter: 2014Q4

REPORT INFORMATION
  Report Type: Report from Study
  Country: IN (occurrence: IN)
  Receive Date: 20111111
  Receipt Date: 20141124
  Transmission Date: 20150529
  Serious: Yes (Life-Threatening, Hospitalization, Other)
  Sender: FDA-Public Use
  Company Number: IN-GILEAD-2011-0046338

PATIENT
  Age: 31 Year
  Sex: Male
  Weight: 47 kg

DRUGS (12)
  1. RANITIDINE HYDROCHLORIDE. [Concomitant]
     Active Substance: RANITIDINE HYDROCHLORIDE
     Indication: DYSPEPSIA
     Dosage: 150 MG, BID
     Route: 048
     Dates: start: 20110830
  2. PARACETAMOL [Concomitant]
     Active Substance: ACETAMINOPHEN
     Indication: HEAD DISCOMFORT
     Dosage: 500 MG, BID
     Route: 048
     Dates: start: 20110808
  3. DIPHENHYDRAMINE [Concomitant]
     Active Substance: DIPHENHYDRAMINE
     Indication: PRODUCTIVE COUGH
     Dosage: 1 DF, TID
     Route: 048
     Dates: start: 20110928
  4. EMTRICITABINE/TENOFOVIR DISOPROXIL FUMARATE [Suspect]
     Active Substance: EMTRICITABINE\TENOFOVIR DISOPROXIL
     Indication: HIV INFECTION
     Dosage: 1 DF, QD
     Route: 048
     Dates: start: 20110120
  5. NEVIRAPINE. [Suspect]
     Active Substance: NEVIRAPINE
     Dosage: 200 MG, UNK
     Route: 048
     Dates: start: 20110120
  6. AUTRIN                             /00622901/ [Concomitant]
     Indication: PARAESTHESIA
     Dosage: 1 DF, QD
     Route: 048
  7. CETRIZINE [Concomitant]
     Active Substance: CETIRIZINE HYDROCHLORIDE
     Indication: PRODUCTIVE COUGH
     Dosage: 10 MG, QD
     Route: 048
     Dates: start: 20110928
  8. NEVIRAPINE. [Suspect]
     Active Substance: NEVIRAPINE
     Indication: HIV INFECTION
     Dosage: 1 DF, BID
     Route: 048
     Dates: start: 20110203
  9. MULTIVITAMINS, COMBINATIONS [Concomitant]
     Indication: ROUTINE HEALTH MAINTENANCE
  10. DICLOFENAC [Concomitant]
     Active Substance: DICLOFENAC
     Indication: BACK PAIN
     Dosage: 50 MG, BID
     Route: 048
     Dates: start: 20110830
  11. AMOXICILLIN. [Concomitant]
     Active Substance: AMOXICILLIN
     Indication: PRODUCTIVE COUGH
     Dosage: 500 MG, TID
     Dates: start: 20110928
  12. EMTRICITABINE/TENOFOVIR DISOPROXIL FUMARATE [Suspect]
     Active Substance: EMTRICITABINE\TENOFOVIR DISOPROXIL
     Dosage: UNK
     Route: 065

REACTIONS (2)
  - Suicidal ideation [Recovered/Resolved]
  - Suicide attempt [Recovered/Resolved]

NARRATIVE: CASE EVENT DATE: 20110830
